FAERS Safety Report 4799830-6 (Version None)
Quarter: 2005Q4

REPORT INFORMATION
  Report Type: 
  Country: None (occurrence: None)
  Receive Date: 20051013
  Receipt Date: 20051006
  Transmission Date: 20060501
  Serious: Yes (Death)
  Sender: FDA-Public Use
  Company Number: T05-ESP-02769-01

PATIENT
  Age: 85 Year
  Sex: Female

DRUGS (1)
  1. MEMANTINE HCL [Suspect]
     Indication: DEMENTIA ALZHEIMER'S TYPE

REACTIONS (2)
  - DECUBITUS ULCER [None]
  - SEPSIS [None]
